FAERS Safety Report 10403826 (Version 1)
Quarter: 2014Q3

REPORT INFORMATION
  Report Type: Spontaneous
  Country: IT (occurrence: IT)
  Receive Date: 20140822
  Receipt Date: 20140822
  Transmission Date: 20150326
  Serious: Yes (Other)
  Sender: FDA-Public Use
  Company Number: IT-BAXTER-2014BAX048725

PATIENT
  Age: 71 Year
  Sex: Male

DRUGS (2)
  1. KIOVIG [Suspect]
     Active Substance: HUMAN IMMUNOGLOBULIN G
     Indication: CHRONIC INFLAMMATORY DEMYELINATING POLYRADICULONEUROPATHY
     Dosage: 0.4 G/KG FOR 5 CONSECUTIVE DAYS
     Route: 042
  2. KIOVIG [Suspect]
     Active Substance: HUMAN IMMUNOGLOBULIN G
     Indication: OFF LABEL USE
     Dosage: 4 COURSES
     Route: 042

REACTIONS (2)
  - Cardiac failure [Unknown]
  - Drug ineffective [Not Recovered/Not Resolved]
